FAERS Safety Report 15578038 (Version 1)
Quarter: 2018Q4

REPORT INFORMATION
  Report Type: Spontaneous
  Country: US (occurrence: US)
  Receive Date: 20181029
  Receipt Date: 20181029
  Transmission Date: 20190205
  Serious: Yes (Hospitalization)
  Sender: FDA-Public Use
  Company Number: None

PATIENT
  Age: 44 Year
  Weight: 47.6 kg

DRUGS (2)
  1. CISPLATIN. [Concomitant]
     Active Substance: CISPLATIN
     Dates: end: 20180926
  2. 5-FLUOROURACIL (5-FU) [Suspect]
     Active Substance: FLUOROURACIL
     Dates: end: 20180926

REACTIONS (7)
  - Febrile neutropenia [None]
  - Dehydration [None]
  - Oral pain [None]
  - Condition aggravated [None]
  - Hypophagia [None]
  - Mucosal inflammation [None]
  - Anaemia [None]

NARRATIVE: CASE EVENT DATE: 20181007
